FAERS Safety Report 19029535 (Version 1)
Quarter: 2021Q1

REPORT INFORMATION
  Report Type: Spontaneous
  Country: US (occurrence: US)
  Receive Date: 20210316
  Receipt Date: 20210316
  Transmission Date: 20210420
  Serious: Yes (Hospitalization)
  Sender: FDA-Public Use
  Company Number: None

PATIENT
  Sex: Male

DRUGS (21)
  1. AMLODIPINE [Concomitant]
     Active Substance: AMLODIPINE BESYLATE
  2. PROAIR DIGIH [Concomitant]
  3. AMBRISENTAN 10MG TAB [Suspect]
     Active Substance: AMBRISENTAN
     Indication: PULMONARY ARTERIAL HYPERTENSION
     Route: 048
     Dates: start: 20210210
  4. ALBUTEROL AER [Concomitant]
     Active Substance: ALBUTEROL
  5. AZELASTINE. [Concomitant]
     Active Substance: AZELASTINE HYDROCHLORIDE
  6. FUROSEMIDE. [Concomitant]
     Active Substance: FUROSEMIDE
  7. HYDRALAZINE [Concomitant]
     Active Substance: HYDRALAZINE HYDROCHLORIDE
  8. BUDESONIDE. [Concomitant]
     Active Substance: BUDESONIDE
  9. PREDNISONE. [Concomitant]
     Active Substance: PREDNISONE
  10. FLUOROMETHOL OP [Concomitant]
  11. LEVOTHYROXIN [Concomitant]
     Active Substance: LEVOTHYROXINE
  12. MONTELUKAST [Concomitant]
     Active Substance: MONTELUKAST SODIUM
  13. POT CHLORIDE ER [Concomitant]
  14. SILDENAFIL. [Concomitant]
     Active Substance: SILDENAFIL
  15. ALLOPURINOL. [Concomitant]
     Active Substance: ALLOPURINOL
  16. DOXYCYCL HYC [Concomitant]
  17. TRELEGY ELLIPT [Concomitant]
  18. ASPIRIN. [Concomitant]
     Active Substance: ASPIRIN
  19. ATORVASTATIN [Concomitant]
     Active Substance: ATORVASTATIN
  20. NUCALA [Concomitant]
     Active Substance: MEPOLIZUMAB
  21. NYSTATIN. [Concomitant]
     Active Substance: NYSTATIN

REACTIONS (1)
  - Hospitalisation [None]
